FAERS Safety Report 8998661 (Version 1)
Quarter: 2013Q1

REPORT INFORMATION
  Report Type: Spontaneous
  Country: IT (occurrence: IT)
  Receive Date: 20130103
  Receipt Date: 20130103
  Transmission Date: 20140127
  Serious: Yes (Other)
  Sender: FDA-Public Use
  Company Number: IT-009507513-1301ITA000060

PATIENT
  Age: 79 Year
  Sex: Female

DRUGS (5)
  1. SIMVASTATIN [Suspect]
     Dosage: 20 MG DAILY
     Route: 048
     Dates: start: 20121101
  2. CARDIOASPIRIN [Suspect]
     Dosage: 100 MG, DAILY
     Route: 048
     Dates: start: 20121101
  3. RAMIPRIL [Suspect]
     Dosage: UNK
     Route: 048
     Dates: start: 20121101
  4. ALLOPURINOL [Suspect]
     Dosage: UNK
     Route: 048
     Dates: start: 20121101
  5. FUROSEMIDE [Suspect]
     Dosage: UNK
     Route: 048
     Dates: start: 20121101

REACTIONS (4)
  - Mucosal inflammation [Recovering/Resolving]
  - Skin exfoliation [Recovering/Resolving]
  - Pruritus [Recovering/Resolving]
  - Rash erythematous [Recovering/Resolving]
